FAERS Safety Report 8985893 (Version 1)
Quarter: 2012Q4

REPORT INFORMATION
  Report Type: 
  Country: DE (occurrence: DE)
  Receive Date: 20121226
  Receipt Date: 20121226
  Transmission Date: 20130627
  Serious: Yes (Hospitalization)
  Sender: FDA-Public Use
  Company Number: DE-ELI_LILLY_AND_COMPANY-DE201212006349

PATIENT
  Sex: Female

DRUGS (5)
  1. BYETTA [Suspect]
     Indication: DIABETES MELLITUS
     Dosage: 10 ug, unknown
     Route: 058
     Dates: start: 201209
  2. LANTUS [Concomitant]
     Dosage: UNK, unknown
  3. METFORMIN [Concomitant]
     Dosage: UNK, unknown
  4. SIMVASTATIN [Concomitant]
     Dosage: UNK, unknown
  5. ASPIRIN PROTECT [Concomitant]
     Dosage: UNK, unknown

REACTIONS (3)
  - Myocardial infarction [Recovered/Resolved]
  - Blood glucose increased [Recovering/Resolving]
  - Weight increased [Not Recovered/Not Resolved]
